FAERS Safety Report 6268775-7 (Version None)
Quarter: 2009Q3

REPORT INFORMATION
  Report Type: 
  Country: None (occurrence: None)
  Receive Date: 20090714
  Receipt Date: 20090714
  Transmission Date: 20100115
  Serious: Yes (Other)
  Sender: FDA-Public Use
  Company Number: None

PATIENT
  Age: 31 Year
  Sex: Female
  Weight: 58.9676 kg

DRUGS (1)
  1. ADDERALL XR 30 [Suspect]
     Indication: ATTENTION DEFICIT/HYPERACTIVITY DISORDER
     Dosage: 15 MG DAY
     Dates: start: 20090501, end: 20090701

REACTIONS (5)
  - DEPRESSION [None]
  - DRUG INEFFECTIVE [None]
  - FEELING ABNORMAL [None]
  - NAUSEA [None]
  - PRODUCT SUBSTITUTION ISSUE [None]
